FAERS Safety Report 6011515-7 (Version None)
Quarter: 2008Q4

REPORT INFORMATION
  Report Type: 
  Country: None (occurrence: None)
  Receive Date: 20081218
  Receipt Date: 20080903
  Transmission Date: 20090506
  Serious: No
  Sender: FDA-Public Use
  Company Number: US-ASTRAZENECA-2008UW18034

PATIENT
  Age: 68 Year
  Sex: Female

DRUGS (7)
  1. CRESTOR [Suspect]
     Route: 048
  2. ELAVIL [Concomitant]
  3. SYNTHROID [Concomitant]
  4. LEVOXYL [Concomitant]
  5. ATIVAN [Concomitant]
  6. PROTONIX [Concomitant]
  7. EXTRA STRENGTH TYLENOL [Concomitant]

REACTIONS (3)
  - MUSCLE INJURY [None]
  - MUSCLE SPASMS [None]
  - MYALGIA [None]
